FAERS Safety Report 13931324 (Version 1)
Quarter: 2017Q3

REPORT INFORMATION
  Report Type: Spontaneous
  Country: IT (occurrence: IT)
  Receive Date: 20170903
  Receipt Date: 20170903
  Transmission Date: 20171127
  Serious: Yes (Other)
  Sender: FDA-Public Use
  Company Number: IT-MYLANLABS-2017M1054361

PATIENT
  Age: 85 Year
  Sex: Male

DRUGS (1)
  1. VALSARTAN. [Suspect]
     Active Substance: VALSARTAN
     Indication: PRODUCT USED FOR UNKNOWN INDICATION
     Dosage: RECEIVED FOR A TOTAL OF 36 MONTHS
     Route: 065

REACTIONS (3)
  - Malabsorption [Recovered/Resolved]
  - Renal failure [Unknown]
  - Hypokalaemia [Unknown]
